FAERS Safety Report 7289417-8 (Version None)
Quarter: 2011Q1

REPORT INFORMATION
  Report Type: 
  Country: None (occurrence: None)
  Receive Date: 20110211
  Receipt Date: 20110131
  Transmission Date: 20110831
  Serious: Yes (Other)
  Sender: FDA-Public Use
  Company Number: US-ELI_LILLY_AND_COMPANY-US201001003349

PATIENT
  Sex: Female
  Weight: 40.363 kg

DRUGS (3)
  1. FORTEO [Suspect]
     Indication: OSTEOPOROSIS
     Dosage: 20 UG, DAILY (1/D)
     Dates: start: 20090806
  2. FORTEO [Suspect]
     Dosage: 20 UG, DAILY (1/D)
  3. FORTEO [Suspect]
     Dosage: 20 UG, DAILY (1/D)
     Dates: end: 20101201

REACTIONS (12)
  - MEMORY IMPAIRMENT [None]
  - PLEURAL EFFUSION [None]
  - NIGHT BLINDNESS [None]
  - BRADYPHRENIA [None]
  - FEELING ABNORMAL [None]
  - ARTHRALGIA [None]
  - OEDEMA PERIPHERAL [None]
  - MALAISE [None]
  - BACK PAIN [None]
  - URETHRAL DISORDER [None]
  - PERICARDIAL EFFUSION [None]
  - DISORIENTATION [None]
